FAERS Safety Report 26174555 (Version 1)
Quarter: 2025Q4

REPORT INFORMATION
  Report Type: Spontaneous
  Country: CN (occurrence: CN)
  Receive Date: 20251218
  Receipt Date: 20251218
  Transmission Date: 20260118
  Serious: Yes (Hospitalization, Other)
  Sender: DR REDDYS
  Company Number: CN-91350100MA32E1214Q-2025SUP000328

PATIENT
  Age: 61 Year
  Sex: Male
  Weight: 46.0 kg

DRUGS (2)
  1. LENALIDOMIDE [Suspect]
     Active Substance: LENALIDOMIDE
     Indication: Neoplasm
     Route: 048
     Dates: start: 20251106, end: 20251120
  2. SELINEXOR [Suspect]
     Active Substance: SELINEXOR
     Indication: Targeted cancer therapy
     Route: 048
     Dates: start: 20251114, end: 20251114

REACTIONS (1)
  - Myelosuppression [Recovering/Resolving]

NARRATIVE: CASE EVENT DATE: 20251120
